FAERS Safety Report 8901298 (Version 2)
Quarter: 2013Q1

REPORT INFORMATION
  Report Type: Spontaneous
  Country: US (occurrence: US)
  Receive Date: 20121109
  Receipt Date: 20130111
  Transmission Date: 20140127
  Serious: No
  Sender: FDA-Public Use
  Company Number: US-PFIZER INC-2012277444

PATIENT
  Age: 54 Year
  Sex: Female
  Weight: 74.83 kg

DRUGS (5)
  1. CELEBREX [Suspect]
     Indication: ARTHRITIS
     Dosage: 200 MG, DAILY
  2. LYRICA [Suspect]
     Indication: FIBROMYALGIA
     Dosage: 50 MG, UNK
  3. LYRICA [Suspect]
     Dosage: 250 MG, DAILY
     Dates: start: 2011
  4. NEURONTIN [Suspect]
     Dosage: UNK
  5. FLEXERIL [Suspect]
     Dosage: UNK

REACTIONS (6)
  - Pain [Unknown]
  - Fibromyalgia [Not Recovered/Not Resolved]
  - Musculoskeletal stiffness [Unknown]
  - Drug ineffective [Unknown]
  - Blood cholesterol increased [Unknown]
  - Amnesia [Unknown]
